FAERS Safety Report 7166867-1 (Version None)
Quarter: 2010Q4

REPORT INFORMATION
  Report Type: 
  Country: None (occurrence: None)
  Receive Date: 20101216
  Receipt Date: 20101209
  Transmission Date: 20110411
  Serious: Yes (Life-Threatening, Hospitalization)
  Sender: FDA-Public Use
  Company Number: DE-CELGENEUS-062-C5013-10112982

PATIENT
  Age: 74 Year
  Sex: Male

DRUGS (10)
  1. CC-5013 [Suspect]
     Indication: MULTIPLE MYELOMA
     Route: 048
     Dates: start: 20100806
  2. CC-5013 [Suspect]
     Route: 048
     Dates: start: 20101029, end: 20101118
  3. DEXAMETHASONE [Suspect]
     Indication: MULTIPLE MYELOMA
     Route: 065
     Dates: start: 20100806
  4. DEXAMETHASONE [Suspect]
     Route: 065
     Dates: start: 20101029
  5. ACETYLSALICYLIC ACID [Concomitant]
     Indication: THROMBOSIS PROPHYLAXIS
     Route: 048
     Dates: start: 20100806
  6. PANTOPRAZOLE [Concomitant]
     Indication: PROPHYLAXIS
     Route: 048
     Dates: start: 20100806
  7. PAMIDRONIC ACID [Concomitant]
     Indication: MULTIPLE MYELOMA
     Route: 051
     Dates: start: 20100806
  8. PAMIDRONIC ACID [Concomitant]
     Indication: OSTEOLYSIS
  9. TAMSULOSIN [Concomitant]
     Indication: BENIGN PROSTATIC HYPERPLASIA
     Route: 048
     Dates: start: 20100901
  10. FILGRASTIM [Concomitant]
     Indication: PROPHYLAXIS
     Route: 048
     Dates: start: 20101001

REACTIONS (5)
  - ABSCESS [None]
  - ANGIOEDEMA [None]
  - BLOOD CULTURE POSITIVE [None]
  - STAPHYLOCOCCAL INFECTION [None]
  - STREPTOCOCCAL INFECTION [None]
